FAERS Safety Report 6081621-X (Version None)
Quarter: 2009Q1

REPORT INFORMATION
  Report Type: 
  Country: None (occurrence: None)
  Receive Date: 20090213
  Receipt Date: 20090204
  Transmission Date: 20090719
  Serious: Yes (Other)
  Sender: FDA-Public Use
  Company Number: GXKR2009GB01548

PATIENT
  Age: 84 Year
  Sex: Male
  Weight: 73.4 kg

DRUGS (6)
  1. WARFARIN SODIUM [Suspect]
     Dosage: 5MG, ORAL
     Route: 048
     Dates: start: 20041101
  2. OMEGA-3 ACID ETHYL ESTERS (OMEGA-3 ACID ETHYL ESTERS) CAPSULES [Suspect]
     Dosage: 1 DF, QD, ORAL
     Route: 048
     Dates: start: 20081011
  3. BUMETANIDE [Concomitant]
  4. LEVOTHYROXINE SODIUM [Concomitant]
  5. LEVOTHYROXINE SODIUM [Concomitant]
  6. RAMIPRIL [Concomitant]

REACTIONS (2)
  - DRUG INTERACTION [None]
  - INTERNATIONAL NORMALISED RATIO INCREASED [None]
